FAERS Safety Report 21906099 (Version 1)
Quarter: 2023Q1

REPORT INFORMATION
  Report Type: Report from Study
  Country: US (occurrence: US)
  Receive Date: 20230124
  Receipt Date: 20230124
  Transmission Date: 20230418
  Serious: Yes (Other)
  Sender: FDA-Public Use
  Company Number: US-ABBVIE-4279091

PATIENT
  Sex: Male

DRUGS (2)
  1. LUPRON [Suspect]
     Active Substance: LEUPROLIDE ACETATE
     Indication: Prostate cancer recurrent
     Dates: start: 2022
  2. XTANDI [Concomitant]
     Active Substance: ENZALUTAMIDE
     Indication: Prostate cancer recurrent
     Dates: start: 2022

REACTIONS (3)
  - Haematuria [Unknown]
  - Obstruction [Unknown]
  - Cystitis radiation [Not Recovered/Not Resolved]
